FAERS Safety Report 18015648 (Version 1)
Quarter: 2020Q3

REPORT INFORMATION
  Report Type: Not Available
  Country: US (occurrence: US)
  Receive Date: 20200713
  Receipt Date: 20200713
  Transmission Date: 20201103
  Serious: No
  Sender: FDA-Public Use
  Company Number: US-NEUROCRINE BIOSCIENCES INC.-2020NBI02233

PATIENT
  Age: 67 Year
  Sex: Female

DRUGS (4)
  1. INGREZZA [Suspect]
     Active Substance: VALBENAZINE
     Indication: TARDIVE DYSKINESIA
     Route: 048
     Dates: start: 20200319, end: 2020
  2. LIPITOR [Concomitant]
     Active Substance: ATORVASTATIN CALCIUM
  3. OLANZAPINE. [Concomitant]
     Active Substance: OLANZAPINE
  4. CLARINEX [Concomitant]
     Active Substance: DESLORATADINE

REACTIONS (1)
  - Electrocardiogram QT prolonged [Unknown]
